FAERS Safety Report 18338426 (Version 1)
Quarter: 2020Q4

REPORT INFORMATION
  Report Type: Spontaneous
  Country: RU (occurrence: RU)
  Receive Date: 20201002
  Receipt Date: 20201002
  Transmission Date: 20210113
  Serious: Yes (Hospitalization)
  Sender: FDA-Public Use
  Company Number: RU-BAYER-2020-208713

PATIENT
  Age: 19 Year
  Sex: Female
  Weight: 50 kg

DRUGS (1)
  1. QLAIRA [Suspect]
     Active Substance: DIENOGEST\ESTRADIOL VALERATE
     Indication: MENORRHAGIA
     Dosage: 1 DF, QD
     Route: 048
     Dates: start: 2020, end: 2020

REACTIONS (1)
  - Cervical polyp [None]

NARRATIVE: CASE EVENT DATE: 2020
